FAERS Safety Report 5378240-7 (Version None)
Quarter: 2007Q3

REPORT INFORMATION
  Report Type: 
  Country: None (occurrence: None)
  Receive Date: 20070702
  Receipt Date: 20070628
  Transmission Date: 20080115
  Serious: Yes (Death, Hospitalization, Other)
  Sender: FDA-Public Use
  Company Number: LTI2007A00121

PATIENT
  Age: 70 Year
  Sex: Male

DRUGS (7)
  1. LEUPROLIDE ACETATE [Suspect]
     Indication: PROSTATE CANCER
     Dosage: 11.25 MG (11.25 MG, 1 IN 3 M) SUBCUTANEOUS
     Route: 058
     Dates: start: 20061102
  2. FLUTAMIDE [Concomitant]
  3. VASTAREL             (TRIMETAZIDINE HYDROCHLORIDE) [Concomitant]
  4. ISOPTIN [Concomitant]
  5. PLAVIX [Concomitant]
  6. KENZEN             (CANDESARTAN CILEXETIL) [Concomitant]
  7. ACETAMINOPHEN W/ CODEINE [Concomitant]

REACTIONS (21)
  - ACIDOSIS [None]
  - ACUTE RESPIRATORY DISTRESS SYNDROME [None]
  - ADRENAL INSUFFICIENCY [None]
  - BACK PAIN [None]
  - BRADYCARDIA [None]
  - BRONCHIAL OBSTRUCTION [None]
  - CARDIOMEGALY [None]
  - CARDIOVASCULAR INSUFFICIENCY [None]
  - CONDUCTION DISORDER [None]
  - COR PULMONALE ACUTE [None]
  - DYSPHAGIA [None]
  - GENERAL PHYSICAL HEALTH DETERIORATION [None]
  - HEPATIC FAILURE [None]
  - HYPERKALAEMIA [None]
  - LARYNGEAL HAEMORRHAGE [None]
  - LUNG INFECTION [None]
  - MALNUTRITION [None]
  - MULTI-ORGAN FAILURE [None]
  - PULMONARY HYPERTENSION [None]
  - RENAL FAILURE [None]
  - SEPTIC SHOCK [None]
